FAERS Safety Report 13520745 (Version 2)
Quarter: 2018Q1

REPORT INFORMATION
  Report Type: Spontaneous
  Country: US (occurrence: US)
  Receive Date: 20170508
  Receipt Date: 20180306
  Transmission Date: 20180508
  Serious: Yes (Hospitalization)
  Sender: FDA-Public Use
  Company Number: US-B.I. PHARMACEUTICALS,INC./RIDGEFIELD-2017-BI-024889

PATIENT
  Age: 54 Year
  Sex: Male
  Weight: 74.03 kg

DRUGS (2)
  1. PRADAXA [Suspect]
     Active Substance: DABIGATRAN ETEXILATE MESYLATE
     Indication: ANTICOAGULANT THERAPY
  2. PRADAXA [Suspect]
     Active Substance: DABIGATRAN ETEXILATE MESYLATE
     Indication: ATRIAL FIBRILLATION
     Route: 065
     Dates: start: 201108

REACTIONS (4)
  - Haemorrhagic anaemia [Unknown]
  - Urinary tract infection [Unknown]
  - Upper gastrointestinal haemorrhage [Unknown]
  - Haematochezia [Unknown]

NARRATIVE: CASE EVENT DATE: 20130720
